FAERS Safety Report 18509906 (Version 2)
Quarter: 2020Q4

REPORT INFORMATION
  Report Type: Spontaneous
  Country: UA (occurrence: UA)
  Receive Date: 20201117
  Receipt Date: 20201125
  Transmission Date: 20210114
  Serious: Yes (Other)
  Sender: FDA-Public Use
  Company Number: UA-TEVA-2020-UA-1848885

PATIENT
  Sex: Female

DRUGS (4)
  1. SUMAMED 1000 MG [Suspect]
     Active Substance: AZITHROMYCIN
     Indication: SUSPECTED COVID-19
     Route: 065
  2. SUMAMED 1000 MG [Suspect]
     Active Substance: AZITHROMYCIN
     Indication: TRACHEOBRONCHITIS
  3. SANOMEN [Concomitant]
  4. SINUPRET [Concomitant]
     Active Substance: DIETARY SUPPLEMENT\HERBALS

REACTIONS (7)
  - Face oedema [Recovered/Resolved]
  - Skin discolouration [Recovered/Resolved]
  - Hypersensitivity [Recovered/Resolved]
  - Erythema [Recovered/Resolved]
  - Rash [Recovered/Resolved]
  - Oedema peripheral [Recovered/Resolved]
  - Pruritus [Recovered/Resolved]
